FAERS Safety Report 7577083-3 (Version None)
Quarter: 2011Q2

REPORT INFORMATION
  Report Type: 
  Country: None (occurrence: None)
  Receive Date: 20110624
  Receipt Date: 20110624
  Transmission Date: 20111010
  Serious: Yes (Other)
  Sender: FDA-Public Use
  Company Number: None

PATIENT
  Age: 71 Year
  Sex: Female
  Weight: 55.3388 kg

DRUGS (1)
  1. FLUOROURACIL [Suspect]
     Indication: PRECANCEROUS SKIN LESION
     Dosage: 2 X DAILY TOP
     Route: 061
     Dates: start: 20110401, end: 20110409

REACTIONS (4)
  - SCAR [None]
  - BACTERIAL INFECTION [None]
  - HAEMORRHAGE [None]
  - ERYTHEMA [None]
